FAERS Safety Report 17610475 (Version 3)
Quarter: 2022Q3

REPORT INFORMATION
  Report Type: Spontaneous
  Country: US (occurrence: US)
  Receive Date: 20200401
  Receipt Date: 20220818
  Transmission Date: 20221027
  Serious: Yes (Other)
  Sender: FDA-Public Use
  Company Number: US-PFIZER INC-2020134880

PATIENT
  Age: 83 Year
  Sex: Female

DRUGS (1)
  1. IBRANCE [Suspect]
     Active Substance: PALBOCICLIB
     Indication: Breast cancer female
     Dosage: 75 MG

REACTIONS (5)
  - Pneumonia [Recovered/Resolved]
  - Neoplasm progression [Unknown]
  - Chronic obstructive pulmonary disease [Unknown]
  - Dysuria [Unknown]
  - Localised infection [Unknown]
